FAERS Safety Report 7043840-5 (Version None)
Quarter: 2010Q4

REPORT INFORMATION
  Report Type: 
  Country: None (occurrence: None)
  Receive Date: 20101013
  Receipt Date: 20101006
  Transmission Date: 20110411
  Serious: Yes (Other)
  Sender: FDA-Public Use
  Company Number: NO-PFIZER INC-2010127881

PATIENT
  Age: 70 Year
  Sex: Female

DRUGS (1)
  1. LIPITOR [Suspect]
     Dosage: 40 MG, 1X/DAY

REACTIONS (4)
  - ALANINE AMINOTRANSFERASE INCREASED [None]
  - BILIARY CIRRHOSIS [None]
  - HEPATIC STEATOSIS [None]
  - MALAISE [None]
